FAERS Safety Report 9168123 (Version 1)
Quarter: 2013Q1

REPORT INFORMATION
  Report Type: Spontaneous
  Country: US (occurrence: US)
  Receive Date: 20130318
  Receipt Date: 20130318
  Transmission Date: 20140127
  Serious: Yes (Other)
  Sender: FDA-Public Use
  Company Number: US-ELI_LILLY_AND_COMPANY-US201303002713

PATIENT
  Age: 75 Year
  Sex: Female

DRUGS (1)
  1. FORTEO [Suspect]
     Dosage: UNK
     Dates: start: 20130301

REACTIONS (1)
  - Blindness unilateral [Unknown]
